FAERS Safety Report 24712676 (Version 1)
Quarter: 2024Q4

REPORT INFORMATION
  Report Type: Spontaneous
  Country: US (occurrence: None)
  Receive Date: 20241209
  Receipt Date: 20241209
  Transmission Date: 20250115
  Serious: Yes (Death)
  Sender: Public
  Company Number: None

PATIENT
  Age: 82 Year
  Sex: Female

DRUGS (1)
  1. BOTOX [Suspect]
     Active Substance: ONABOTULINUMTOXINA
     Indication: Dystonia
     Dosage: OTHER FREQUENCY : EVERY 3 MONTHS;?
     Route: 030
     Dates: start: 20241109

REACTIONS (1)
  - Death [None]

NARRATIVE: CASE EVENT DATE: 20241101
